FAERS Safety Report 8387665-7 (Version None)
Quarter: 2012Q2

REPORT INFORMATION
  Report Type: 
  Country: None (occurrence: None)
  Receive Date: 20120525
  Receipt Date: 20120522
  Transmission Date: 20120825
  Serious: No
  Sender: FDA-Public Use
  Company Number: US-PFIZER INC-2012124426

PATIENT
  Sex: Female
  Weight: 64.399 kg

DRUGS (4)
  1. PAXIL [Concomitant]
     Indication: DEPRESSION
     Dosage: 20 MG, DAILY
  2. PREMARIN [Suspect]
     Indication: HYSTERECTOMY
     Dosage: 0.625 MG, DAILY
     Route: 048
     Dates: end: 20120401
  3. DIOVAN [Concomitant]
     Indication: HYPERTENSION
     Dosage: UNK
  4. ZOCOR [Concomitant]
     Indication: BLOOD TRIGLYCERIDES INCREASED
     Dosage: UNK

REACTIONS (5)
  - ERYTHEMA [None]
  - MOOD ALTERED [None]
  - FEELING HOT [None]
  - FEELING ABNORMAL [None]
  - NIGHT SWEATS [None]
